FAERS Safety Report 6784873-3 (Version None)
Quarter: 2010Q2

REPORT INFORMATION
  Report Type: 
  Country: None (occurrence: None)
  Receive Date: 20100622
  Receipt Date: 20100621
  Transmission Date: 20101027
  Serious: Yes (Hospitalization, Other)
  Sender: FDA-Public Use
  Company Number: US-CEPHALON-2010003339

PATIENT
  Sex: Male

DRUGS (4)
  1. TREANDA [Suspect]
     Indication: CHRONIC LYMPHOCYTIC LEUKAEMIA
     Route: 042
     Dates: start: 20100324, end: 20100325
  2. ALLOPURINOL [Concomitant]
     Dates: start: 20100317
  3. PROCHLORPERAZINE [Concomitant]
     Dates: start: 20100324, end: 20100604
  4. NEXIUM [Concomitant]
     Dates: start: 20091204, end: 20100610

REACTIONS (2)
  - COOMBS NEGATIVE HAEMOLYTIC ANAEMIA [None]
  - PNEUMONIA PNEUMOCOCCAL [None]
